FAERS Safety Report 8178764-3 (Version None)
Quarter: 2012Q1

REPORT INFORMATION
  Report Type: 
  Country: None (occurrence: None)
  Receive Date: 20120301
  Receipt Date: 20120301
  Transmission Date: 20120608
  Serious: No
  Sender: FDA-Public Use
  Company Number: None

PATIENT
  Age: 35 Year
  Sex: Female
  Weight: 52.616 kg

DRUGS (1)
  1. BRIELLYN [Suspect]
     Indication: ORAL CONTRACEPTION
     Dosage: 1 PILL
     Route: 048
     Dates: start: 20110119, end: 20120212

REACTIONS (5)
  - GINGIVAL BLEEDING [None]
  - DRUG EFFECT DECREASED [None]
  - METRORRHAGIA [None]
  - EMOTIONAL DISORDER [None]
  - PRODUCT MEASURED POTENCY ISSUE [None]
